FAERS Safety Report 20988431 (Version 1)
Quarter: 2022Q2

REPORT INFORMATION
  Report Type: Report from Study
  Country: US (occurrence: US)
  Receive Date: 20220621
  Receipt Date: 20220621
  Transmission Date: 20220721
  Serious: Yes (Death, Other)
  Sender: FDA-Public Use
  Company Number: US-TAKEDA-2022TUS031079

PATIENT
  Sex: Male

DRUGS (3)
  1. MOBOCERTINIB [Suspect]
     Active Substance: MOBOCERTINIB
     Indication: Colon cancer
     Dosage: 160 MILLIGRAM, QD
     Route: 065
     Dates: start: 20220507
  2. MOBOCERTINIB [Suspect]
     Active Substance: MOBOCERTINIB
     Indication: Malignant neoplasm of ampulla of Vater
     Dosage: 160 MILLIGRAM, QD
     Route: 065
     Dates: start: 20220510, end: 20220515
  3. MORPHINE [Concomitant]
     Active Substance: MORPHINE
     Dosage: UNK

REACTIONS (6)
  - Death [Fatal]
  - Fatigue [Recovered/Resolved]
  - Decreased appetite [Recovered/Resolved]
  - Weight decreased [Recovered/Resolved]
  - Off label use [Unknown]
  - Intentional product misuse [Unknown]
